FAERS Safety Report 8190094-2 (Version None)
Quarter: 2012Q1

REPORT INFORMATION
  Report Type: 
  Country: None (occurrence: None)
  Receive Date: 20120307
  Receipt Date: 20120307
  Transmission Date: 20120608
  Serious: No
  Sender: FDA-Public Use
  Company Number: None

PATIENT
  Age: 43 Year
  Sex: Female
  Weight: 113.39 kg

DRUGS (1)
  1. RISPERIDONE [Suspect]
     Indication: IMPULSE-CONTROL DISORDER
     Dates: start: 20110501, end: 20120306

REACTIONS (3)
  - NEEDLE ISSUE [None]
  - INCORRECT DOSE ADMINISTERED BY DEVICE [None]
  - SYRINGE ISSUE [None]
